FAERS Safety Report 16922609 (Version 1)
Quarter: 2019Q4

REPORT INFORMATION
  Report Type: Spontaneous
  Country: IN (occurrence: IN)
  Receive Date: 20191016
  Receipt Date: 20191016
  Transmission Date: 20200122
  Serious: Yes (Hospitalization, Other)
  Sender: FDA-Public Use
  Company Number: IN-NOVAST LABORATORIES LTD.-2019NOV000292

PATIENT
  Age: 33 Year
  Sex: Male

DRUGS (2)
  1. CYPROHEPTADINE. [Suspect]
     Active Substance: CYPROHEPTADINE
     Indication: WEIGHT INCREASED
     Dosage: 4 MILLIGRAM
     Route: 065
  2. DEXAMETHASONE. [Suspect]
     Active Substance: DEXAMETHASONE
     Indication: WEIGHT INCREASED
     Dosage: 0.5 MILLIGRAM
     Route: 065

REACTIONS (3)
  - Weight increased [Unknown]
  - Product use in unapproved indication [Unknown]
  - Familial periodic paralysis [Recovered/Resolved]
